FAERS Safety Report 6705206-4 (Version None)
Quarter: 2010Q2

REPORT INFORMATION
  Report Type: 
  Country: None (occurrence: None)
  Receive Date: 20100430
  Receipt Date: 20100301
  Transmission Date: 20101027
  Serious: No
  Sender: FDA-Public Use
  Company Number: US-ASTRAZENECA-2010SE09132

PATIENT
  Age: 46 Year
  Sex: Female

DRUGS (11)
  1. NEXIUM [Suspect]
     Indication: GASTROOESOPHAGEAL REFLUX DISEASE
     Route: 048
     Dates: start: 20000101
  2. PRILOSEC OTC [Suspect]
     Indication: GASTROOESOPHAGEAL REFLUX DISEASE
     Route: 048
     Dates: start: 20100101
  3. MORPHINE [Concomitant]
  4. XANAX [Concomitant]
  5. POTASSIUM [Concomitant]
  6. EFFEXOR [Concomitant]
  7. KLONOPIN [Concomitant]
  8. LASIX [Concomitant]
  9. OXYCONTIN [Concomitant]
  10. ALPREZALINE [Concomitant]
  11. PROPRANOLOL [Concomitant]

REACTIONS (1)
  - OSTEOPOROSIS [None]
